FAERS Safety Report 19041610 (Version 2)
Quarter: 2021Q1

REPORT INFORMATION
  Report Type: Spontaneous
  Country: US (occurrence: US)
  Receive Date: 20210322
  Receipt Date: 20210325
  Transmission Date: 20210420
  Serious: Yes (Hospitalization)
  Sender: FDA-Public Use
  Company Number: US-JNJFOC-20210325119

PATIENT
  Sex: Male

DRUGS (3)
  1. NIVOLUMAB [Suspect]
     Active Substance: NIVOLUMAB
     Indication: COLORECTAL CANCER METASTATIC
     Route: 042
     Dates: start: 20200309
  2. MOTRIN [Suspect]
     Active Substance: IBUPROFEN
     Indication: PROCTALGIA
     Route: 048
  3. IPILIMUMAB [Suspect]
     Active Substance: IPILIMUMAB
     Indication: COLORECTAL CANCER METASTATIC
     Route: 058
     Dates: start: 20200309

REACTIONS (1)
  - Gastritis [Unknown]

NARRATIVE: CASE EVENT DATE: 20201221
